FAERS Safety Report 6201121-3 (Version None)
Quarter: 2009Q2

REPORT INFORMATION
  Report Type: 
  Country: None (occurrence: None)
  Receive Date: 20090526
  Receipt Date: 20090514
  Transmission Date: 20091009
  Serious: Yes (Other)
  Sender: FDA-Public Use
  Company Number: US-BAYER-200921005NA

PATIENT
  Age: 83 Year
  Sex: Female

DRUGS (4)
  1. AVELOX [Suspect]
     Indication: INFECTION
     Dates: start: 20070201
  2. AVELOX [Suspect]
     Dates: start: 20070401
  3. AVELOX [Suspect]
     Dates: start: 20080901
  4. PREDNISONE [Concomitant]
     Dates: start: 20080901

REACTIONS (2)
  - MUSCULOSKELETAL PAIN [None]
  - ROTATOR CUFF SYNDROME [None]
